FAERS Safety Report 10375165 (Version 2)
Quarter: 2014Q3

REPORT INFORMATION
  Report Type: Other
  Country: US (occurrence: US)
  Receive Date: 20140811
  Receipt Date: 20140820
  Transmission Date: 20150326
  Serious: Yes (Hospitalization)
  Sender: FDA-Public Use
  Company Number: US-SHIRE-US201404540

PATIENT
  Age: 20 Year
  Sex: Female

DRUGS (2)
  1. CINRYZE [Suspect]
     Active Substance: HUMAN C1-ESTERASE INHIBITOR
     Indication: HEREDITARY ANGIOEDEMA
     Dosage: 1000 UNITS, OTHER (EVERY 3 OR 4 DAYS)
     Route: 042
     Dates: start: 201306
  2. CINRYZE [Suspect]
     Active Substance: HUMAN C1-ESTERASE INHIBITOR
     Indication: PROPHYLAXIS

REACTIONS (3)
  - Medical device complication [Recovered/Resolved]
  - Pneumothorax [Recovered/Resolved]
  - Catheter site pain [Recovered/Resolved]

NARRATIVE: CASE EVENT DATE: 201407
